FAERS Safety Report 13869395 (Version 1)
Quarter: 2017Q3

REPORT INFORMATION
  Report Type: Spontaneous
  Country: US (occurrence: US)
  Receive Date: 20170815
  Receipt Date: 20170815
  Transmission Date: 20171127
  Serious: Yes (Hospitalization, Other)
  Sender: FDA-Public Use
  Company Number: US-PFIZER INC-2017349346

PATIENT
  Sex: Female
  Weight: 53.52 kg

DRUGS (4)
  1. PROTONIX [Suspect]
     Active Substance: PANTOPRAZOLE SODIUM
     Indication: GASTRIC ULCER
     Dosage: 40 MG, 2X/DAY
     Route: 048
  2. BABY ASPIRIN [Concomitant]
     Active Substance: ASPIRIN
     Indication: ANTICOAGULANT THERAPY
     Dosage: 81 MG, UNK
  3. LEVOTHYROXINE. [Concomitant]
     Active Substance: LEVOTHYROXINE
     Indication: THYROID DISORDER
     Dosage: 137 UG, 1X/DAY
  4. ATENOLOL. [Concomitant]
     Active Substance: ATENOLOL
     Indication: BLOOD PRESSURE ABNORMAL
     Dosage: 50 MG, 1X/DAY

REACTIONS (2)
  - Cerebrovascular accident [Unknown]
  - Product use in unapproved indication [Unknown]
